FAERS Safety Report 5769589-4 (Version None)
Quarter: 2008Q2

REPORT INFORMATION
  Report Type: 
  Country: None (occurrence: None)
  Receive Date: 20080612
  Receipt Date: 20080522
  Transmission Date: 20081010
  Serious: No
  Sender: FDA-Public Use
  Company Number: US-ABBOTT-08P-163-0445378-00

PATIENT
  Sex: Female
  Weight: 90.9 kg

DRUGS (2)
  1. HUMIRA [Suspect]
     Indication: CROHN'S DISEASE
     Route: 058
     Dates: start: 20080101, end: 20080201
  2. HUMIRA [Suspect]
     Dates: start: 20080201, end: 20080424

REACTIONS (13)
  - CHILLS [None]
  - COUGH [None]
  - DIARRHOEA [None]
  - GASTROENTERITIS VIRAL [None]
  - INFLUENZA [None]
  - PHARYNGOLARYNGEAL PAIN [None]
  - PYREXIA [None]
  - RESPIRATORY TRACT CONGESTION [None]
  - RHINORRHOEA [None]
  - SINUSITIS [None]
  - SPUTUM DISCOLOURED [None]
  - UPPER RESPIRATORY TRACT CONGESTION [None]
  - VOMITING [None]
